FAERS Safety Report 7986112 (Version 5)
Quarter: 2015Q1

REPORT INFORMATION
  Report Type: Spontaneous
  Country: US (occurrence: US)
  Receive Date: 20110610
  Receipt Date: 20150327
  Transmission Date: 20150721
  Serious: Yes (Hospitalization, Disabling, Other)
  Sender: FDA-Public Use
  Company Number: US-MERCK-1106USA00885

PATIENT
  Sex: Female
  Weight: 62.59 kg

DRUGS (4)
  1. ALENDRONATE SODIUM. [Suspect]
     Active Substance: ALENDRONATE SODIUM
     Indication: OSTEOPENIA
     Dosage: 70 MG, QW
     Route: 048
     Dates: end: 2010
  2. FOSAMAX [Suspect]
     Active Substance: ALENDRONATE SODIUM
     Indication: OSTEOPENIA
     Dosage: UNK
     Route: 048
     Dates: start: 1996, end: 2010
  3. FOSAMAX [Suspect]
     Active Substance: ALENDRONATE SODIUM
     Indication: OSTEOPOROSIS
     Dosage: 70 MG, QW
     Route: 048
  4. ALENDRONATE SODIUM. [Suspect]
     Active Substance: ALENDRONATE SODIUM
     Indication: OSTEOPOROSIS

REACTIONS (40)
  - Intramedullary rod insertion [Recovered/Resolved]
  - Osteoporosis [Not Recovered/Not Resolved]
  - Femur fracture [Recovered/Resolved]
  - Adverse event [Unknown]
  - Hypercholesterolaemia [Recovered/Resolved]
  - Atrophic vulvovaginitis [Unknown]
  - Salpingo-oophorectomy bilateral [Unknown]
  - Heart rate increased [Unknown]
  - Bursitis [Unknown]
  - Cough [Unknown]
  - Osteoarthritis [Unknown]
  - Large intestinal polypectomy [Unknown]
  - Diarrhoea [Not Recovered/Not Resolved]
  - Calcium deficiency [Unknown]
  - Vitamin D deficiency [Unknown]
  - Rheumatoid arthritis [Unknown]
  - Foot operation [Unknown]
  - Tachycardia [Unknown]
  - Gastrooesophageal reflux disease [Unknown]
  - Bone disorder [Not Recovered/Not Resolved]
  - Gastric bypass [Unknown]
  - Type 2 diabetes mellitus [Unknown]
  - Inappropriate schedule of drug administration [Unknown]
  - Pain in jaw [Unknown]
  - Essential hypertension [Unknown]
  - Removal of internal fixation [Unknown]
  - Chest pain [Unknown]
  - Migraine [Unknown]
  - Cataract [Unknown]
  - Hysterectomy [Unknown]
  - Low turnover osteopathy [Not Recovered/Not Resolved]
  - Rib fracture [Unknown]
  - Medical device pain [Unknown]
  - Hyperparathyroidism [Unknown]
  - Large intestinal polypectomy [Unknown]
  - Sleep apnoea syndrome [Unknown]
  - Muscle spasms [Unknown]
  - Carpal tunnel decompression [Unknown]
  - Large intestine polyp [Unknown]
  - Appendicectomy [Unknown]

NARRATIVE: CASE EVENT DATE: 1996
